FAERS Safety Report 26180434 (Version 1)
Quarter: 2025Q4

REPORT INFORMATION
  Report Type: Spontaneous
  Country: EU (occurrence: EU)
  Receive Date: 20251219
  Receipt Date: 20251219
  Transmission Date: 20260119
  Serious: Yes (Death, Hospitalization)
  Sender: VELOXIS PHARMACEUTICALS
  Company Number: EU-ROCHE-2108505

PATIENT
  Age: 54 Year
  Sex: Female

DRUGS (7)
  1. TACROLIMUS [Suspect]
     Active Substance: TACROLIMUS
     Indication: Cryoglobulinaemia
     Dosage: UNK
     Route: 065
  2. TACROLIMUS [Suspect]
     Active Substance: TACROLIMUS
     Indication: Hepatitis C
  3. TACROLIMUS [Suspect]
     Active Substance: TACROLIMUS
     Indication: Off label use
  4. RITUXIMAB [Suspect]
     Active Substance: RITUXIMAB
     Indication: Cryoglobulinaemia
     Dosage: 9000 MILLIGRAM, UNK
  5. RITUXIMAB [Suspect]
     Active Substance: RITUXIMAB
     Indication: Hepatitis C
  6. MYCOPHENOLATE MOFETIL [Suspect]
     Active Substance: MYCOPHENOLATE MOFETIL
     Indication: Cryoglobulinaemia
     Dosage: UNK
     Route: 065
  7. MYCOPHENOLATE MOFETIL [Suspect]
     Active Substance: MYCOPHENOLATE MOFETIL
     Indication: Hepatitis C

REACTIONS (8)
  - Cerebral haemorrhage [Fatal]
  - Haematological infection [Fatal]
  - Candida infection [Fatal]
  - Staphylococcal infection [Fatal]
  - Pseudomonas infection [Fatal]
  - Pneumonia bacterial [Fatal]
  - Klebsiella infection [Fatal]
  - Off label use [Unknown]
